FAERS Safety Report 4852819-0 (Version None)
Quarter: 2005Q4

REPORT INFORMATION
  Report Type: 
  Country: None (occurrence: None)
  Receive Date: 20051212
  Receipt Date: 20051212
  Transmission Date: 20060501
  Serious: Yes (Life-Threatening)
  Sender: FDA-Public Use
  Company Number: None

PATIENT
  Sex: Male

DRUGS (1)
  1. GOLYTELY [Suspect]
     Indication: DIAGNOSTIC PROCEDURE
     Dosage: 4 LITERS ORDERED.  300 CC TAKEN X1 PO
     Route: 048
     Dates: start: 20051130, end: 20051130

REACTIONS (2)
  - ANAPHYLACTIC REACTION [None]
  - VOMITING [None]
